FAERS Safety Report 6103744-9 (Version None)
Quarter: 2009Q1

REPORT INFORMATION
  Report Type: 
  Country: None (occurrence: None)
  Receive Date: 20090305
  Receipt Date: 20090226
  Transmission Date: 20090719
  Serious: Yes (Other)
  Sender: FDA-Public Use
  Company Number: PHEH2009US02188

PATIENT
  Age: 79 Year
  Sex: Female

DRUGS (2)
  1. EXFORGE [Suspect]
     Dosage: 5MG/ 160MG
     Dates: start: 20090101
  2. ATENOLOL [Concomitant]

REACTIONS (3)
  - FALL [None]
  - HEAD INJURY [None]
  - JOINT INJURY [None]
